FAERS Safety Report 24000346 (Version 1)
Quarter: 2024Q2

REPORT INFORMATION
  Report Type: Other
  Country: US (occurrence: US)
  Receive Date: 20240621
  Receipt Date: 20240621
  Transmission Date: 20240716
  Serious: Yes (Other)
  Sender: FDA-Public Use
  Company Number: US-Person and Covey-2158376

PATIENT

DRUGS (1)
  1. DHS TAR GEL [Suspect]
     Active Substance: COAL TAR
     Route: 003
     Dates: start: 20240604, end: 20240604

REACTIONS (1)
  - Alopecia [Unknown]

NARRATIVE: CASE EVENT DATE: 20240604
